FAERS Safety Report 24054160 (Version 1)
Quarter: 2024Q3

REPORT INFORMATION
  Report Type: Spontaneous
  Country: US (occurrence: US)
  Receive Date: 20240705
  Receipt Date: 20240705
  Transmission Date: 20241017
  Serious: Yes (Life-Threatening, Other)
  Sender: MALLINCKRODT
  Company Number: US-MALLINCKRODT-MNK202404307

PATIENT
  Age: 16 Month

DRUGS (2)
  1. NITRIC OXIDE [Suspect]
     Active Substance: NITRIC OXIDE
     Indication: Product used for unknown indication
     Dosage: 20 PPM
     Route: 055
     Dates: start: 20240625, end: 20240625
  2. NITRIC OXIDE [Suspect]
     Active Substance: NITRIC OXIDE
     Dosage: 13 PPM
     Route: 055
     Dates: start: 20240625

REACTIONS (6)
  - Oxygen saturation decreased [Unknown]
  - Pulmonary hypertension [Not Recovered/Not Resolved]
  - Tachycardia [Unknown]
  - Hypotension [Unknown]
  - Bradycardia [Unknown]
  - Product use issue [Unknown]

NARRATIVE: CASE EVENT DATE: 20240625
